FAERS Safety Report 10079434 (Version 1)
Quarter: 2014Q2

REPORT INFORMATION
  Report Type: Spontaneous
  Country: US (occurrence: US)
  Receive Date: 20140415
  Receipt Date: 20140415
  Transmission Date: 20141212
  Serious: Yes (Disabling)
  Sender: FDA-Public Use
  Company Number: US-MERCK-1404USA007911

PATIENT
  Sex: Male

DRUGS (10)
  1. PEGINTRON [Suspect]
     Indication: CHRONIC HEPATITIS C
     Dosage: 150 MICROGRAM, QW (150/0.5)
     Dates: end: 20140411
  2. RIBAVIRIN (WARRICK) [Suspect]
     Indication: CHRONIC HEPATITIS C
     Dosage: 600 MG, BID
     Route: 048
     Dates: end: 20140411
  3. WARFARIN [Concomitant]
  4. OMEPRAZOLE [Concomitant]
  5. FUROSEMIDE [Concomitant]
  6. SIMVASTATIN TABLETS, USP [Concomitant]
  7. FLUOXETINE [Concomitant]
  8. AMBIEN [Concomitant]
  9. [THERAPY UNSPECIFIED] [Concomitant]
  10. SOVALDI [Concomitant]

REACTIONS (4)
  - Abasia [Not Recovered/Not Resolved]
  - Vertigo [Not Recovered/Not Resolved]
  - Hypotension [Not Recovered/Not Resolved]
  - Fatigue [Not Recovered/Not Resolved]
